FAERS Safety Report 24743971 (Version 1)
Quarter: 2024Q4

REPORT INFORMATION
  Report Type: Spontaneous
  Country: US (occurrence: None)
  Receive Date: 20241217
  Receipt Date: 20241217
  Transmission Date: 20250114
  Serious: No
  Sender: Public
  Company Number: None

PATIENT
  Age: 66 Year
  Sex: Male

DRUGS (11)
  1. HUMIRA [Suspect]
     Active Substance: ADALIMUMAB
     Indication: Rheumatoid arthritis
     Dates: start: 20240326
  2. AMLODIPINE [Concomitant]
     Active Substance: AMLODIPINE BESYLATE
  3. BACLOFEN TAB5MG [Concomitant]
  4. BYSTOLIC TAB 10MG [Concomitant]
  5. CIALIS TAB5MG [Concomitant]
  6. FENTANYL DIS 12MCG/HR [Concomitant]
  7. FLOMAX [Concomitant]
     Active Substance: TAMSULOSIN HYDROCHLORIDE
  8. FOLIC ACID TAB 1MG [Concomitant]
  9. KETAMINE HCL INJ 100/10ML [Concomitant]
  10. LORAZEPAM TAB1MG [Concomitant]
  11. MIRALAX POW 3350 NF [Concomitant]

REACTIONS (3)
  - Pain [None]
  - Therapy interrupted [None]
  - Drug ineffective [None]

NARRATIVE: CASE EVENT DATE: 20240918
